FAERS Safety Report 7955278-4 (Version None)
Quarter: 2011Q4

REPORT INFORMATION
  Report Type: 
  Country: None (occurrence: None)
  Receive Date: 20111202
  Receipt Date: 20111122
  Transmission Date: 20120403
  Serious: Yes (Other)
  Sender: FDA-Public Use
  Company Number: US-CELGENEUS-163-21880-11103155

PATIENT
  Sex: Female

DRUGS (3)
  1. REVLIMID [Suspect]
     Indication: MULTIPLE MYELOMA
     Dosage: 15 MILLIGRAM
     Route: 048
     Dates: start: 20110315
  2. REVLIMID [Suspect]
     Dosage: 5 MILLIGRAM
     Route: 048
     Dates: start: 20110401
  3. DEXAMETHASONE [Concomitant]
     Route: 065

REACTIONS (7)
  - LACERATION [None]
  - HAEMORRHAGE [None]
  - OEDEMA [None]
  - CONTUSION [None]
  - ABDOMINAL DISTENSION [None]
  - HEADACHE [None]
  - THROAT TIGHTNESS [None]
